FAERS Safety Report 5942575-7 (Version None)
Quarter: 2008Q4

REPORT INFORMATION
  Report Type: 
  Country: None (occurrence: None)
  Receive Date: 20081105
  Receipt Date: 20081030
  Transmission Date: 20090506
  Serious: Yes (Hospitalization)
  Sender: FDA-Public Use
  Company Number: US-ABBOTT-08P-163-0483113-00

PATIENT
  Sex: Female

DRUGS (4)
  1. HUMIRA [Suspect]
     Indication: RHEUMATOID ARTHRITIS
     Route: 058
     Dates: start: 20070701, end: 20080201
  2. HUMIRA [Suspect]
     Route: 058
     Dates: start: 20080308, end: 20080701
  3. HUMIRA [Suspect]
     Route: 058
     Dates: end: 20080901
  4. HUMIRA [Suspect]
     Route: 058

REACTIONS (6)
  - CATARACT [None]
  - DIZZINESS [None]
  - HAEMORRHAGE [None]
  - INFECTION [None]
  - MYCOPLASMA INFECTION [None]
  - VERTIGO [None]
